FAERS Safety Report 19106923 (Version 1)
Quarter: 2021Q2

REPORT INFORMATION
  Report Type: Spontaneous
  Country: US (occurrence: US)
  Receive Date: 20210407
  Receipt Date: 20210407
  Transmission Date: 20210717
  Serious: Yes (Hospitalization)
  Sender: FDA-Public Use
  Company Number: None

PATIENT
  Sex: Female

DRUGS (3)
  1. PULMOZYME [Suspect]
     Active Substance: DORNASE ALFA
     Route: 055
     Dates: start: 20210227
  2. ALTERA HANDSET (NO COST) GILEAD PARI RESPIRATORY [Suspect]
     Active Substance: DEVICE
     Dosage: ?          OTHER STRENGTH:GILEAD;?
     Route: 055
     Dates: start: 20210227
  3. CAYSTON [Suspect]
     Active Substance: AZTREONAM
     Dates: start: 20210227

REACTIONS (1)
  - Hospitalisation [None]
